FAERS Safety Report 5713034-1 (Version None)
Quarter: 2008Q2

REPORT INFORMATION
  Report Type: 
  Country: None (occurrence: None)
  Receive Date: 20080422
  Receipt Date: 20080417
  Transmission Date: 20081010
  Serious: Yes (Hospitalization)
  Sender: FDA-Public Use
  Company Number: JP-ASTRAZENECA-2008AP02105

PATIENT
  Sex: Female

DRUGS (1)
  1. ZOMIG [Suspect]
     Dosage: 5 TABLETS TOTALLY.  INTERVAL UNKNOWN.
     Route: 048

REACTIONS (1)
  - EPILEPSY [None]
